FAERS Safety Report 9726453 (Version 2)
Quarter: 2014Q1

REPORT INFORMATION
  Report Type: Report from Study
  Country: US (occurrence: US)
  Receive Date: 20131203
  Receipt Date: 20140221
  Transmission Date: 20141002
  Serious: Yes (Other)
  Sender: FDA-Public Use
  Company Number: US-ABBVIE-13P-163-1160655-00

PATIENT
  Age: 27 Year
  Sex: Male
  Weight: 69.4 kg

DRUGS (5)
  1. HUMIRA [Suspect]
     Indication: CROHN^S DISEASE
     Dosage: 160 MG STARTING DOSE FOLLOWED 2 WEEKS LATER BY 80 MG THEN 40MG EVERY OTHER WEEK THEREAFTER
     Route: 058
     Dates: start: 2011, end: 20120830
  2. HUMIRA [Suspect]
     Dates: start: 20131204
  3. PREDNISONE [Concomitant]
     Indication: PRODUCT USED FOR UNKNOWN INDICATION
     Dosage: 40 MG DAILY ON A WEEKLY REDUCING AMOUNT BY 10 MG
  4. 6-MP [Concomitant]
     Indication: PRODUCT USED FOR UNKNOWN INDICATION
  5. VITAMIN D [Concomitant]
     Indication: VITAMIN D DECREASED

REACTIONS (5)
  - Ileal stenosis [Recovered/Resolved]
  - Diarrhoea [Unknown]
  - Weight decreased [Unknown]
  - Drug ineffective [Unknown]
  - Intestinal fibrosis [Recovered/Resolved]
